FAERS Safety Report 15902993 (Version 3)
Quarter: 2019Q1

REPORT INFORMATION
  Report Type: Spontaneous
  Country: JP (occurrence: JP)
  Receive Date: 20190202
  Receipt Date: 20190312
  Transmission Date: 20190417
  Serious: Yes (Other)
  Sender: FDA-Public Use
  Company Number: JP-ROCHE-2256273

PATIENT
  Age: 10 Year
  Sex: Male
  Weight: 40 kg

DRUGS (5)
  1. CALONAL [Concomitant]
     Active Substance: ACETAMINOPHEN
     Indication: INFLUENZA
     Route: 048
     Dates: start: 20190119, end: 20190119
  2. HUSTAZOL (JAPAN) [Concomitant]
     Active Substance: CLOPERASTINE
     Indication: INFLUENZA
     Route: 048
     Dates: start: 20190119, end: 20190119
  3. XOFLUZA [Suspect]
     Active Substance: BALOXAVIR MARBOXIL
     Indication: INFLUENZA
     Route: 048
     Dates: start: 20190119, end: 20190119
  4. POLARAMINE [Concomitant]
     Active Substance: DEXCHLORPHENIRAMINE MALEATE
     Indication: INFLUENZA
     Route: 048
     Dates: start: 20190119, end: 20190119
  5. MUCOBULIN [Concomitant]
     Active Substance: AMBROXOL HYDROCHLORIDE
     Indication: INFLUENZA
     Route: 065
     Dates: start: 20190119, end: 20190119

REACTIONS (3)
  - Abnormal behaviour [Recovered/Resolved]
  - Prescribed underdose [Unknown]
  - Vomiting [Recovered/Resolved]

NARRATIVE: CASE EVENT DATE: 20190119
